FAERS Safety Report 7461154-6 (Version None)
Quarter: 2011Q2

REPORT INFORMATION
  Report Type: 
  Country: None (occurrence: None)
  Receive Date: 20110505
  Receipt Date: 20101018
  Transmission Date: 20111010
  Serious: No
  Sender: FDA-Public Use
  Company Number: US-AMGEN-USASP2010000727

PATIENT
  Sex: Female

DRUGS (3)
  1. TREXALL [Concomitant]
     Dosage: 1 MG, QWK
     Dates: start: 20100331
  2. ENBREL [Suspect]
     Indication: RHEUMATOID ARTHRITIS
     Dosage: 50 MG, QWK
     Dates: start: 20071019
  3. ENBREL [Suspect]
     Indication: FIBROMYALGIA

REACTIONS (2)
  - PAIN [None]
  - RHEUMATOID ARTHRITIS [None]
